FAERS Safety Report 6054394-4 (Version None)
Quarter: 2009Q1

REPORT INFORMATION
  Report Type: 
  Country: None (occurrence: None)
  Receive Date: 20090123
  Receipt Date: 20090123
  Transmission Date: 20090719
  Serious: Yes (Death)
  Sender: FDA-Public Use
  Company Number: None

PATIENT
  Sex: Male
  Weight: 103.9 kg

DRUGS (2)
  1. BORTEZOMIB 3.5 MG POWDER MILLENIUM [Suspect]
     Indication: MULTIPLE MYELOMA
     Dosage: 3 MG EVERY 3-4 DAYS IV BOLUS
     Route: 040
     Dates: start: 20081231, end: 20090108
  2. BORTEZOMIB 3.5 MG POWDER MILLENIUM [Suspect]

REACTIONS (5)
  - ATRIAL FIBRILLATION [None]
  - CARDIAC FAILURE CONGESTIVE [None]
  - CARDIO-RESPIRATORY ARREST [None]
  - DIALYSIS [None]
  - RENAL IMPAIRMENT [None]
